FAERS Safety Report 6097209-0 (Version None)
Quarter: 2009Q1

REPORT INFORMATION
  Report Type: 
  Country: None (occurrence: None)
  Receive Date: 20090227
  Receipt Date: 20090216
  Transmission Date: 20090719
  Serious: Yes (Hospitalization)
  Sender: FDA-Public Use
  Company Number: B0554949A

PATIENT
  Age: 54 Year
  Sex: Male
  Weight: 80 kg

DRUGS (1)
  1. ARIXTRA [Suspect]
     Dosage: 2.5MG PER DAY
     Route: 058
     Dates: start: 20081129, end: 20081201

REACTIONS (5)
  - BLOOD PRESSURE IMMEASURABLE [None]
  - GASTROINTESTINAL HAEMORRHAGE [None]
  - GAZE PALSY [None]
  - HAEMATEMESIS [None]
  - SKIN DISCOLOURATION [None]
